FAERS Safety Report 15729653 (Version 2)
Quarter: 2019Q1

REPORT INFORMATION
  Report Type: Spontaneous
  Country: US (occurrence: US)
  Receive Date: 20181217
  Receipt Date: 20190329
  Transmission Date: 20190417
  Serious: Yes (Hospitalization, Other)
  Sender: FDA-Public Use
  Company Number: US-SA-2018SA165916

PATIENT
  Age: 57 Year
  Sex: Male
  Weight: 104.31 kg

DRUGS (5)
  1. AMPYRA [Concomitant]
     Active Substance: DALFAMPRIDINE
     Dosage: 10 MG, Q12H
     Route: 048
  2. LEMTRADA [Suspect]
     Active Substance: ALEMTUZUMAB
     Indication: MULTIPLE SCLEROSIS
     Dosage: UNK
     Route: 041
     Dates: start: 20180228, end: 20180302
  3. ACYCLOVIR [ACICLOVIR] [Concomitant]
     Active Substance: ACYCLOVIR
     Indication: ANTIVIRAL TREATMENT
     Dosage: 400 MG, BID
     Route: 048
     Dates: start: 20180228
  4. BACLOFEN. [Concomitant]
     Active Substance: BACLOFEN
     Indication: MUSCLE SPASTICITY
     Dosage: 20 MG, QD
     Route: 048
  5. GABAPENTIN. [Concomitant]
     Active Substance: GABAPENTIN
     Indication: PAIN
     Dosage: 300 MG, TID
     Route: 048

REACTIONS (3)
  - Immune thrombocytopenic purpura [Not Recovered/Not Resolved]
  - Tongue haematoma [Recovered/Resolved]
  - Platelet count decreased [Not Recovered/Not Resolved]

NARRATIVE: CASE EVENT DATE: 20180420
